FAERS Safety Report 8430642-8 (Version None)
Quarter: 2012Q2

REPORT INFORMATION
  Report Type: 
  Country: None (occurrence: None)
  Receive Date: 20120606
  Receipt Date: 20120606
  Transmission Date: 20120825
  Serious: Yes (Life-Threatening, Hospitalization)
  Sender: FDA-Public Use
  Company Number: None

PATIENT
  Age: 35 Year
  Sex: Female
  Weight: 61.2356 kg

DRUGS (2)
  1. CYMBALTA [Suspect]
     Indication: DEPRESSION
     Dosage: 60MG DAILY PO
     Route: 048
     Dates: start: 20070101, end: 20120601
  2. CYMBALTA [Suspect]
     Indication: ANXIETY
     Dosage: 60MG DAILY PO
     Route: 048
     Dates: start: 20070101, end: 20120601

REACTIONS (1)
  - SUICIDE ATTEMPT [None]
